FAERS Safety Report 19619983 (Version 5)
Quarter: 2021Q3

REPORT INFORMATION
  Report Type: Spontaneous
  Country: US (occurrence: US)
  Receive Date: 20210728
  Receipt Date: 20210825
  Transmission Date: 20211014
  Serious: No
  Sender: FDA-Public Use
  Company Number: US-UNITED THERAPEUTICS-UNT-2021-014294

PATIENT
  Sex: Female
  Weight: 45.35 kg

DRUGS (4)
  1. ADEMPAS [Suspect]
     Active Substance: RIOCIGUAT
     Indication: PRODUCT USED FOR UNKNOWN INDICATION
     Dosage: UNK
     Route: 065
  2. TYVASO [Suspect]
     Active Substance: TREPROSTINIL
     Dosage: UNK
  3. TYVASO [Suspect]
     Active Substance: TREPROSTINIL
     Indication: PULMONARY ARTERIAL HYPERTENSION
     Dosage: UNK
     Dates: start: 20180419
  4. TYVASO [Suspect]
     Active Substance: TREPROSTINIL
     Dosage: 18?54 ?G, QID

REACTIONS (9)
  - Product label confusion [Unknown]
  - Abdominal pain upper [Unknown]
  - Crying [Unknown]
  - Memory impairment [Not Recovered/Not Resolved]
  - Anxiety [Unknown]
  - Confusional state [Unknown]
  - Nervousness [Unknown]
  - Dry mouth [Unknown]
  - Tremor [Unknown]
